FAERS Safety Report 6597958-1 (Version None)
Quarter: 2010Q1

REPORT INFORMATION
  Report Type: 
  Country: None (occurrence: None)
  Receive Date: 20100223
  Receipt Date: 20091217
  Transmission Date: 20100710
  Serious: No
  Sender: FDA-Public Use
  Company Number: US-ALLERGAN-0917367US

PATIENT
  Sex: Female

DRUGS (8)
  1. BOTOX [Suspect]
     Indication: MUSCLE SPASTICITY
     Dosage: 600 UNITS, SINGLE
     Route: 030
     Dates: start: 20091107, end: 20091107
  2. DANTRIUM [Concomitant]
  3. VITAMIN C [Concomitant]
  4. VITAMIN E [Concomitant]
  5. MOBIC [Concomitant]
  6. AMANTADINE HCL [Concomitant]
  7. BIOTIN [Concomitant]
  8. COQ-10 [Concomitant]
     Dosage: UNK

REACTIONS (1)
  - ASTHENIA [None]
